FAERS Safety Report 25069555 (Version 1)
Quarter: 2025Q1

REPORT INFORMATION
  Report Type: Report from Study
  Country: US (occurrence: US)
  Receive Date: 20250312
  Receipt Date: 20250312
  Transmission Date: 20250409
  Serious: Yes (Hospitalization)
  Sender: GILEAD
  Company Number: US-GILEAD-2025-0706919

PATIENT
  Age: 8 Year
  Sex: Male

DRUGS (1)
  1. AZTREONAM LYSINE [Suspect]
     Active Substance: AZTREONAM LYSINE
     Indication: Acute respiratory failure
     Dosage: 75 MG/INHALE 1 ML (75 MG) VIA ALTERA NEBULIZER THREE TIMES DAILY, 28 DAYS ON AND 28 DAYS OFF
     Route: 055

REACTIONS (2)
  - Infection [Unknown]
  - Product use in unapproved indication [Not Recovered/Not Resolved]
